FAERS Safety Report 24670157 (Version 2)
Quarter: 2024Q4

REPORT INFORMATION
  Report Type: Spontaneous
  Country: SE (occurrence: SE)
  Receive Date: 20241127
  Receipt Date: 20241212
  Transmission Date: 20250115
  Serious: Yes (Disabling, Other)
  Sender: AMGEN
  Company Number: SE-AMGEN-SWESP2024232358

PATIENT
  Age: 76 Year
  Sex: Male
  Weight: 85 kg

DRUGS (3)
  1. LUMAKRAS [Suspect]
     Active Substance: SOTORASIB
     Indication: Lung neoplasm malignant
     Dosage: UNK
     Route: 048
  2. LUMAKRAS [Suspect]
     Active Substance: SOTORASIB
     Dosage: 8 DOSAGE FORM (8X1)
     Route: 048
     Dates: start: 20241119, end: 20241121
  3. LUMAKRAS [Suspect]
     Active Substance: SOTORASIB
     Dosage: 4 DOSAGE FORM (4X1, HALF DOSE)
     Route: 048
     Dates: start: 20241122

REACTIONS (15)
  - Chills [Unknown]
  - Nausea [Unknown]
  - Dizziness [Unknown]
  - General physical condition abnormal [Unknown]
  - Lung neoplasm malignant [Unknown]
  - Syncope [Unknown]
  - Dysstasia [Unknown]
  - Pyrexia [Unknown]
  - Therapy interrupted [Unknown]
  - Vomiting [Recovering/Resolving]
  - Chest discomfort [Recovering/Resolving]
  - Blood alkaline phosphatase increased [Recovering/Resolving]
  - Gamma-glutamyltransferase increased [Recovering/Resolving]
  - Aspartate aminotransferase increased [Recovering/Resolving]
  - Alanine aminotransferase increased [Recovering/Resolving]

NARRATIVE: CASE EVENT DATE: 20241120
